FAERS Safety Report 4428088-2 (Version None)
Quarter: 2004Q3

REPORT INFORMATION
  Report Type: 
  Country: None (occurrence: None)
  Receive Date: 20040816
  Receipt Date: 20040729
  Transmission Date: 20050211
  Serious: Yes (Hospitalization)
  Sender: FDA-Public Use
  Company Number: 202616

PATIENT
  Age: 62 Year
  Sex: Male

DRUGS (6)
  1. AVONEX [Suspect]
     Indication: MULTIPLE SCLEROSIS
  2. AVONEX [Suspect]
     Indication: MULTIPLE SCLEROSIS
  3. GLUCOTROL [Concomitant]
  4. DIGOXIN [Concomitant]
  5. PRINIVIL [Concomitant]
  6. INSULIN [Concomitant]

REACTIONS (2)
  - DIABETES MELLITUS [None]
  - SEPSIS [None]
